FAERS Safety Report 9275618 (Version 2)
Quarter: 2013Q3

REPORT INFORMATION
  Report Type: Spontaneous
  Country: US (occurrence: US)
  Receive Date: 20130507
  Receipt Date: 20130703
  Transmission Date: 20140515
  Serious: Yes (Death, Hospitalization)
  Sender: FDA-Public Use
  Company Number: US-INCYTE CORPORATION-2013IN000648

PATIENT
  Age: 75 Year
  Sex: Female

DRUGS (13)
  1. JAKAFI [Suspect]
     Indication: MYELOFIBROSIS
     Dosage: 10 MG, BID
     Route: 048
     Dates: start: 20120112, end: 201304
  2. JAKAFI [Suspect]
     Dosage: 15 MG, BID
     Route: 048
     Dates: start: 201304
  3. PROCHLORPERAZINE [Concomitant]
  4. HYDROXYUREA [Concomitant]
  5. POLYETHYLENE GLYCOL [Concomitant]
  6. FEROCON [Concomitant]
  7. FEROTRIN [Concomitant]
  8. MULTIVITAMIN [Concomitant]
  9. AMBIEN [Concomitant]
  10. FERROUS SULFATE [Concomitant]
  11. LEVOTHYROXINE [Concomitant]
  12. ASPIRIN [Concomitant]
     Dosage: 81 MG, UNK
  13. ALEVE [Concomitant]

REACTIONS (4)
  - Death [Fatal]
  - Hospitalisation [Unknown]
  - White blood cell count increased [Unknown]
  - Haemoglobin decreased [Unknown]
